FAERS Safety Report 4716312-8 (Version None)
Quarter: 2005Q3

REPORT INFORMATION
  Report Type: 
  Country: None (occurrence: None)
  Receive Date: 20050711
  Receipt Date: 20050110
  Transmission Date: 20060218
  Serious: Yes (Hospitalization)
  Sender: FDA-Public Use
  Company Number: 392278

PATIENT
  Age: 49 Year
  Sex: Female
  Weight: 108.9 kg

DRUGS (11)
  1. CELLCEPT [Suspect]
     Indication: RENAL FAILURE
     Dosage: 2000 MG DAILY ORAL
     Route: 048
     Dates: start: 20041215
  2. CELLCEPT [Suspect]
     Indication: RENAL IMPAIRMENT
     Dosage: 2000 MG DAILY ORAL
     Route: 048
     Dates: start: 20041215
  3. PLAVIX [Concomitant]
  4. NEXIUM [Concomitant]
  5. NORVASC [Concomitant]
  6. 1 CONCOMITANT DRUG (GENERIC UNKNOWN) [Concomitant]
  7. PREDNISONE [Concomitant]
  8. ALLOPURINOL [Concomitant]
  9. METOPROLOL TARTRATE [Concomitant]
  10. FUROSEMIDE [Concomitant]
  11. ASPIRIN [Concomitant]

REACTIONS (4)
  - CHEST PAIN [None]
  - INFLUENZA LIKE ILLNESS [None]
  - MUSCLE SPASMS [None]
  - PAIN [None]
